FAERS Safety Report 6384242-4 (Version None)
Quarter: 2009Q3

REPORT INFORMATION
  Report Type: 
  Country: None (occurrence: None)
  Receive Date: 20090928
  Receipt Date: 20090914
  Transmission Date: 20100115
  Serious: Yes (Death)
  Sender: FDA-Public Use
  Company Number: 007611

PATIENT
  Age: 14 Year
  Sex: Male

DRUGS (3)
  1. BUSULFEX [Suspect]
     Indication: STEM CELL TRANSPLANT
     Dosage: 16 MG/KG, QD
  2. CYCLOPHOSPHAMIDE [Concomitant]
  3. ATG (ANTILYMPHOCYTE IMMUGLOBLULIN) (HORSE)) [Concomitant]

REACTIONS (1)
  - ACUTE RESPIRATORY DISTRESS SYNDROME [None]
